FAERS Safety Report 8293484-2 (Version None)
Quarter: 2012Q2

REPORT INFORMATION
  Report Type: 
  Country: None (occurrence: None)
  Receive Date: 20120417
  Receipt Date: 20120406
  Transmission Date: 20120825
  Serious: Yes (Hospitalization, Other)
  Sender: FDA-Public Use
  Company Number: FR-ELI_LILLY_AND_COMPANY-FR201204003328

PATIENT
  Sex: Female

DRUGS (3)
  1. ALIMTA [Suspect]
     Dosage: 500 MG, UNKNOWN
     Route: 042
  2. CISPLATIN [Concomitant]
  3. AVASTIN [Concomitant]

REACTIONS (2)
  - NEUTROPENIA [None]
  - TREMOR [None]
